FAERS Safety Report 22632055 (Version 1)
Quarter: 2023Q2

REPORT INFORMATION
  Report Type: Report from Study
  Country: US (occurrence: US)
  Receive Date: 20230623
  Receipt Date: 20230623
  Transmission Date: 20230722
  Serious: Yes (Other)
  Sender: FDA-Public Use
  Company Number: US-002147023-NVSC2023US138365

PATIENT
  Sex: Female

DRUGS (11)
  1. CLOBETASOL [Suspect]
     Active Substance: CLOBETASOL
     Indication: Psoriasis
     Dosage: UNK
     Route: 061
  2. CLOBETASOL [Suspect]
     Active Substance: CLOBETASOL
     Indication: Psoriatic arthropathy
  3. HYDROCORTISONE [Suspect]
     Active Substance: HYDROCORTISONE
     Indication: Psoriasis
     Dosage: UNK
     Route: 061
  4. HYDROCORTISONE [Suspect]
     Active Substance: HYDROCORTISONE
     Indication: Psoriatic arthropathy
  5. KETOCONAZOLE [Suspect]
     Active Substance: KETOCONAZOLE
     Indication: Psoriasis
     Dosage: UNK
     Route: 061
  6. TRIAMCINOLONE [Suspect]
     Active Substance: TRIAMCINOLONE
     Indication: Psoriasis
     Dosage: UNK
     Route: 061
  7. TRIAMCINOLONE [Suspect]
     Active Substance: TRIAMCINOLONE
     Indication: Psoriatic arthropathy
  8. CALCIPOTRIENE [Suspect]
     Active Substance: CALCIPOTRIENE
     Indication: Psoriasis
     Dosage: UNK
     Route: 061
  9. CALCIPOTRIENE [Suspect]
     Active Substance: CALCIPOTRIENE
     Indication: Psoriatic arthropathy
  10. CALAMINE LOTION [Suspect]
     Active Substance: CALAMINE LOTION
     Indication: Psoriasis
     Dosage: UNK
     Route: 061
  11. CALAMINE LOTION [Suspect]
     Active Substance: CALAMINE LOTION
     Indication: Psoriatic arthropathy

REACTIONS (12)
  - Psoriatic arthropathy [Unknown]
  - Intertrigo [Unknown]
  - Idiopathic guttate hypomelanosis [Unknown]
  - Seborrhoeic dermatitis [Unknown]
  - Dermatitis [Recovering/Resolving]
  - Psoriasis [Unknown]
  - Rash [Not Recovered/Not Resolved]
  - Rash erythematous [Unknown]
  - Rash pruritic [Not Recovered/Not Resolved]
  - Skin exfoliation [Unknown]
  - Drug ineffective [Unknown]
  - Product use in unapproved indication [Unknown]
